FAERS Safety Report 5831603-5 (Version None)
Quarter: 2008Q3

REPORT INFORMATION
  Report Type: 
  Country: None (occurrence: None)
  Receive Date: 20080730
  Receipt Date: 20080715
  Transmission Date: 20090109
  Serious: Yes (Life-Threatening, Hospitalization)
  Sender: FDA-Public Use
  Company Number: 2008AL004149

PATIENT
  Age: 19 Year
  Sex: Female
  Weight: 49.8957 kg

DRUGS (2)
  1. DIGOXIN [Suspect]
     Indication: TRANSPOSITION OF THE GREAT VESSELS
     Dosage: 0.125MG DAILY PO
     Route: 048
     Dates: start: 20080301, end: 20080401
  2. COUMADIN [Concomitant]

REACTIONS (2)
  - EMBOLIC STROKE [None]
  - NAUSEA [None]
